FAERS Safety Report 5400272-0 (Version None)
Quarter: 2007Q3

REPORT INFORMATION
  Report Type: 
  Country: None (occurrence: None)
  Receive Date: 20070730
  Receipt Date: 20070717
  Transmission Date: 20080115
  Serious: Yes (Other)
  Sender: FDA-Public Use
  Company Number: ES-ROCHE-507964

PATIENT
  Age: 45 Year
  Sex: Male

DRUGS (2)
  1. PEGASYS [Suspect]
     Dosage: FORM REPORTED AS PRE FILLED SYRINGE.
     Route: 058
     Dates: start: 20070407
  2. COPEGUS [Suspect]
     Dosage: FORM REPORTED AS COATED TABLETS.
     Route: 048
     Dates: start: 20070407

REACTIONS (2)
  - DIZZINESS [None]
  - SYNCOPE [None]
